FAERS Safety Report 8008552-X (Version None)
Quarter: 2011Q4

REPORT INFORMATION
  Report Type: 
  Country: None (occurrence: None)
  Receive Date: 20111227
  Receipt Date: 20111213
  Transmission Date: 20120403
  Serious: Yes (Death, Hospitalization, Other)
  Sender: FDA-Public Use
  Company Number: SK-ROCHE-1023761

PATIENT
  Age: 77 Year
  Sex: Male

DRUGS (4)
  1. LUCENTIS [Suspect]
     Indication: AGE-RELATED MACULAR DEGENERATION
     Route: 050
     Dates: start: 20080428
  2. LUCENTIS [Suspect]
     Route: 050
     Dates: start: 20080526
  3. LUCENTIS [Suspect]
     Route: 050
     Dates: start: 20090323
  4. LUCENTIS [Suspect]
     Route: 050
     Dates: start: 20080623

REACTIONS (14)
  - DEMENTIA [None]
  - VITREOUS DISORDER [None]
  - HYPOSOMNIA [None]
  - EYE PAIN [None]
  - RETINOSCHISIS [None]
  - CHOROIDAL NEOVASCULARISATION [None]
  - ANXIETY [None]
  - VISUAL ACUITY REDUCED [None]
  - CARDIAC FAILURE [None]
  - CONJUNCTIVAL OEDEMA [None]
  - EYE HAEMORRHAGE [None]
  - DEPRESSION [None]
  - RETINAL DISORDER [None]
  - INJECTION SITE EXTRAVASATION [None]
